FAERS Safety Report 7486112-7 (Version None)
Quarter: 2011Q2

REPORT INFORMATION
  Report Type: 
  Country: None (occurrence: None)
  Receive Date: 20110516
  Receipt Date: 20110516
  Transmission Date: 20111010
  Serious: No
  Sender: FDA-Public Use
  Company Number: None

PATIENT
  Sex: Female

DRUGS (1)
  1. AMPYRA [Suspect]
     Dosage: TAKE 1 TABLET BY MOUTH EVERY 12 HOURS  10 MG PO
     Route: 048

REACTIONS (2)
  - NAUSEA [None]
  - HEADACHE [None]
